FAERS Safety Report 8802019 (Version 1)
Quarter: 2012Q4

REPORT INFORMATION
  Report Type: 
  Country: SA (occurrence: SA)
  Receive Date: 20120921
  Receipt Date: 20120921
  Transmission Date: 20130627
  Serious: No
  Sender: FDA-Public Use
  Company Number: PHHY2012SA082104

PATIENT
  Age: 75 Year
  Sex: Female

DRUGS (11)
  1. TASIGNA [Suspect]
     Indication: CHRONIC MYELOID LEUKAEMIA
     Dosage: 200 mg, BID
     Route: 048
     Dates: start: 201205
  2. EZETIMIBE [Concomitant]
     Indication: BLOOD CHOLESTEROL INCREASED
     Dosage: 10 mg, UNK
  3. AMLODIPINE [Concomitant]
     Dosage: 5 mg, UNK
  4. ASPIRIN [Concomitant]
     Dosage: 81 mg, UNK
  5. ATORVASTATIN [Concomitant]
     Dosage: 40 mg, UNK
  6. BISOPROLOL [Concomitant]
  7. FUROSEMIDE [Concomitant]
     Dosage: 40 mg, UNK
  8. INSULIN [Concomitant]
  9. LISINOPRIL [Concomitant]
     Dosage: 5 mg, UNK
  10. PLAVIX [Concomitant]
     Dosage: 75 mg, UNK
  11. RABEPRAZOLE [Concomitant]
     Dosage: 20 mg, UNK

REACTIONS (1)
  - Pruritus generalised [Not Recovered/Not Resolved]
